FAERS Safety Report 9736257 (Version 3)
Quarter: 2014Q2

REPORT INFORMATION
  Report Type: Report from Study
  Country: FR (occurrence: FR)
  Receive Date: 20131206
  Receipt Date: 20140513
  Transmission Date: 20141212
  Serious: Yes (Hospitalization)
  Sender: FDA-Public Use
  Company Number: FR-ABBVIE-13P-056-1174339-00

PATIENT
  Age: 39 Year
  Sex: Female
  Weight: 77 kg

DRUGS (7)
  1. HUMIRA [Suspect]
     Indication: CROHN^S DISEASE
     Route: 058
     Dates: start: 20090225, end: 20090225
  2. HUMIRA [Suspect]
     Dosage: WEEK 2
     Route: 058
  3. HUMIRA [Suspect]
     Route: 058
  4. TOPALGIC [Concomitant]
     Indication: INTERVERTEBRAL DISC PROTRUSION
     Dates: start: 201004
  5. PREDNISONE [Concomitant]
     Indication: CROHN^S DISEASE
     Dates: end: 200409
  6. PREDNISONE [Concomitant]
  7. AZATHIOPRINE [Concomitant]
     Indication: CROHN^S DISEASE

REACTIONS (1)
  - Henoch-Schonlein purpura [Recovered/Resolved]
